FAERS Safety Report 20687766 (Version 4)
Quarter: 2023Q2

REPORT INFORMATION
  Report Type: Other
  Country: BE (occurrence: None)
  Receive Date: 20220408
  Receipt Date: 20230606
  Transmission Date: 20230722
  Serious: No
  Sender: FDA-Public Use
  Company Number: BE-ROCHE-3067645

PATIENT
  Age: 36 Year
  Sex: Male
  Weight: 88 kg

DRUGS (8)
  1. OCRELIZUMAB [Suspect]
     Active Substance: OCRELIZUMAB
     Indication: Relapsing-remitting multiple sclerosis
     Dosage: 300 MG/281 ML, ON DAY 1 AND DAY 14 THEN 600 MG EVERY 6 MONTHS?SUBSEQUENT SAME DOSE ADMINISTERED ON 1
     Route: 042
     Dates: start: 20190329
  2. OCRELIZUMAB [Suspect]
     Active Substance: OCRELIZUMAB
     Dosage: SUBSEQUENT SAME DOSE ADMINISTERED ON 03-APR-2020, 09-APR-2021, 08-OCT-2021, 08-APR-2022, 07-OCT-2022
     Route: 042
     Dates: start: 20191018
  3. OCRELIZUMAB [Suspect]
     Active Substance: OCRELIZUMAB
     Route: 042
     Dates: start: 20201009
  4. BILASTINE [Concomitant]
     Active Substance: BILASTINE
     Route: 048
     Dates: start: 2017
  5. FOLIC ACID [Concomitant]
     Active Substance: FOLIC ACID
     Route: 048
     Dates: start: 20201008
  6. EBASTINE [Concomitant]
     Active Substance: EBASTINE
     Route: 048
  7. MODERNA COVID-19 VACCINE [Concomitant]
     Active Substance: ELASOMERAN
     Route: 030
     Dates: start: 20220124, end: 20220124
  8. DAFALGAN [Concomitant]
     Active Substance: ACETAMINOPHEN
     Indication: Multiple sclerosis
     Route: 048
     Dates: start: 2021

REACTIONS (1)
  - COVID-19 [Recovered/Resolved]

NARRATIVE: CASE EVENT DATE: 20220201
